FAERS Safety Report 5731223-7 (Version None)
Quarter: 2008Q2

REPORT INFORMATION
  Report Type: 
  Country: None (occurrence: None)
  Receive Date: 20080507
  Receipt Date: 20080411
  Transmission Date: 20081010
  Serious: No
  Sender: FDA-Public Use
  Company Number: US-BOEHRINGER INGELHEIM GMBH, GERMANY-2008-BP-05794BP

PATIENT
  Age: 86 Year
  Sex: Male

DRUGS (2)
  1. FLOMAX [Suspect]
     Indication: BENIGN PROSTATIC HYPERPLASIA
     Route: 048
     Dates: start: 19980101
  2. FLOMAX [Suspect]
     Indication: URINE FLOW DECREASED

REACTIONS (3)
  - PRURITUS [None]
  - RASH [None]
  - RHINORRHOEA [None]
